FAERS Safety Report 24094819 (Version 2)
Quarter: 2024Q3

REPORT INFORMATION
  Report Type: Spontaneous
  Country: US (occurrence: US)
  Receive Date: 20240716
  Receipt Date: 20240807
  Transmission Date: 20241017
  Serious: Yes (Life-Threatening, Hospitalization)
  Sender: TEVA
  Company Number: US-TEVA-VS-3217902

PATIENT
  Age: 65 Year
  Sex: Female

DRUGS (7)
  1. EPINEPHRINE [Suspect]
     Active Substance: EPINEPHRINE
     Indication: Intentional overdose
     Route: 065
  2. AMLODIPINE [Suspect]
     Active Substance: AMLODIPINE BESYLATE
     Indication: Suicide attempt
     Route: 065
  3. VALPROATE SODIUM [Suspect]
     Active Substance: VALPROATE SODIUM
     Indication: Suicide attempt
     Route: 065
  4. METHYLENE BLUE [Suspect]
     Active Substance: METHYLENE BLUE
     Indication: Vasoplegia syndrome
     Route: 040
  5. LISINOPRIL [Suspect]
     Active Substance: LISINOPRIL
     Indication: Suicide attempt
     Route: 065
  6. NOREPINEPHRINE [Concomitant]
     Active Substance: NOREPINEPHRINE\NOREPINEPHRINE BITARTRATE
     Indication: Overdose
  7. VASOPRESSIN [Suspect]
     Active Substance: VASOPRESSIN
     Indication: Intentional overdose
     Route: 065

REACTIONS (11)
  - Hyperglycaemia [Unknown]
  - Drug ineffective [Unknown]
  - Blood creatinine increased [Unknown]
  - Leukocytosis [Unknown]
  - Vasoplegia syndrome [Unknown]
  - Chromaturia [Unknown]
  - Suicide attempt [Unknown]
  - Lactic acidosis [Unknown]
  - Intentional overdose [Unknown]
  - Hypotension [Unknown]
  - Somnolence [Unknown]
